FAERS Safety Report 23776330 (Version 1)
Quarter: 2024Q2

REPORT INFORMATION
  Report Type: Spontaneous
  Country: FR (occurrence: FR)
  Receive Date: 20240424
  Receipt Date: 20240424
  Transmission Date: 20240716
  Serious: Yes (Hospitalization, Other)
  Sender: FDA-Public Use
  Company Number: FR-CELLTRION INC.-2024FR009094

PATIENT

DRUGS (5)
  1. RITUXIMAB [Suspect]
     Active Substance: RITUXIMAB
     Indication: Angioimmunoblastic T-cell lymphoma
     Dosage: 375 MG/M2, EVERY 3 WEEKS
     Route: 042
     Dates: start: 20191115, end: 20200506
  2. ONCOVIN [Suspect]
     Active Substance: VINCRISTINE SULFATE
     Indication: Angioimmunoblastic T-cell lymphoma
     Dosage: 1.4 MG/M2, EVERY 3 WEEKS
     Route: 042
     Dates: start: 20191115, end: 20200506
  3. DOXORUBICIN [Suspect]
     Active Substance: DOXORUBICIN
     Indication: Angioimmunoblastic T-cell lymphoma
     Dosage: 50 MG/M2, EVERY 3 WEEKS
     Route: 042
     Dates: start: 20191115, end: 20200506
  4. CYCLOPHOSPHAMIDE [Suspect]
     Active Substance: CYCLOPHOSPHAMIDE
     Indication: Angioimmunoblastic T-cell lymphoma
     Dosage: 750 MG/M2, EVERY 3 WEEKS
     Route: 042
     Dates: start: 20191115, end: 20200506
  5. PREDNISONE [Concomitant]
     Active Substance: PREDNISONE
     Indication: Angioimmunoblastic T-cell lymphoma
     Dosage: 40 MG/M2
     Route: 042
     Dates: start: 20191115, end: 20200506

REACTIONS (2)
  - Acute myeloid leukaemia [Not Recovered/Not Resolved]
  - Intentional product use issue [Unknown]

NARRATIVE: CASE EVENT DATE: 20210712
